FAERS Safety Report 9156587 (Version 1)
Quarter: 2013Q1

REPORT INFORMATION
  Report Type: Spontaneous
  Country: US (occurrence: None)
  Receive Date: 20130222
  Receipt Date: 20130222
  Transmission Date: 20140127
  Serious: Yes (Hospitalization, Other)
  Sender: FDA-Public Use
  Company Number: E2B_00000593

PATIENT
  Age: 35 Year
  Sex: Female

DRUGS (7)
  1. ZIPRASIDONE HYDROCHLORIDE [Suspect]
     Indication: BIPOLAR DISORDER
     Dosage: 100 MG (20 MG, 5 IN 1 D), PER ORAL
     Route: 048
     Dates: start: 201203, end: 201301
  2. ZIPRASIDONE HYDROCHLORIDE [Suspect]
     Indication: SCHIZOPHRENIA
     Dosage: 100 MG (20 MG, 5 IN 1 D), PER ORAL
     Route: 048
     Dates: start: 201203, end: 201301
  3. ZIPRASIDONE HYDROCHLORIDE [Suspect]
     Indication: PARANOIA
     Dosage: 100 MG (20 MG, 5 IN 1 D), PER ORAL
     Route: 048
     Dates: start: 201203, end: 201301
  4. ZIPRASIDONE HYDROCHLORIDE [Suspect]
     Indication: HALLUCINATION, AUDITORY
     Dosage: 100 MG (20 MG, 5 IN 1 D), PER ORAL
     Route: 048
     Dates: start: 201203, end: 201301
  5. INFLIXIMAB (REMICADE) (INJECTION) [Concomitant]
  6. LORAZEPAM (TAB) [Concomitant]
  7. ZOLPIDEM (UNK) [Concomitant]

REACTIONS (9)
  - Drug ineffective [None]
  - Psychiatric symptom [None]
  - Condition aggravated [None]
  - Insomnia [None]
  - Somnolence [None]
  - Agitation [None]
  - Sinus disorder [None]
  - Aggression [None]
  - Malabsorption [None]
